FAERS Safety Report 12675600 (Version 1)
Quarter: 2016Q3

REPORT INFORMATION
  Report Type: Spontaneous
  Country: US (occurrence: None)
  Receive Date: 20160822
  Receipt Date: 20160822
  Transmission Date: 20161109
  Serious: Yes (Life-Threatening, Hospitalization)
  Sender: FDA-Public Use
  Company Number: None

PATIENT
  Age: 72 Year
  Sex: Female
  Weight: 56.25 kg

DRUGS (3)
  1. PANTOPRAZOLE 40 MG [Suspect]
     Active Substance: PANTOPRAZOLE SODIUM
     Indication: PROPHYLAXIS AGAINST GASTROINTESTINAL ULCER
     Dosage: ONE PILL ONE A DAY ORAL
     Route: 048
  2. VITAMIN D [Concomitant]
     Active Substance: CHOLECALCIFEROL
  3. CELEXA [Concomitant]
     Active Substance: CITALOPRAM HYDROBROMIDE

REACTIONS (9)
  - Lip swelling [None]
  - Noninfective gingivitis [None]
  - Rash erythematous [None]
  - Atrial fibrillation [None]
  - Throat tightness [None]
  - Dyspnoea [None]
  - Pruritus generalised [None]
  - Swollen tongue [None]
  - Rash generalised [None]

NARRATIVE: CASE EVENT DATE: 20160420
